FAERS Safety Report 5844552-3 (Version None)
Quarter: 2008Q3

REPORT INFORMATION
  Report Type: 
  Country: None (occurrence: None)
  Receive Date: 20080814
  Receipt Date: 20080811
  Transmission Date: 20090109
  Serious: Yes (Hospitalization)
  Sender: FDA-Public Use
  Company Number: PHHO2005NO05995

PATIENT
  Sex: Female
  Weight: 46.7 kg

DRUGS (1)
  1. EXELON [Suspect]
     Indication: DEMENTIA ALZHEIMER'S TYPE
     Dosage: 5-20 CM2
     Dates: start: 20041029

REACTIONS (1)
  - GASTROINTESTINAL DISORDER [None]
